FAERS Safety Report 5947032-X (Version None)
Quarter: 2008Q4

REPORT INFORMATION
  Report Type: 
  Country: None (occurrence: None)
  Receive Date: 20081110
  Receipt Date: 20081030
  Transmission Date: 20090506
  Serious: Yes (Hospitalization)
  Sender: FDA-Public Use
  Company Number: FR-ASTRAZENECA-2008CG01602

PATIENT
  Age: 64 Year
  Sex: Female

DRUGS (2)
  1. CRESTOR [Suspect]
     Indication: DYSLIPIDAEMIA
     Route: 048
     Dates: start: 20080916, end: 20081001
  2. AMLODIPINE [Suspect]
     Indication: HYPERTENSION

REACTIONS (1)
  - TOXIC SKIN ERUPTION [None]
